FAERS Safety Report 6162182-3 (Version None)
Quarter: 2009Q2

REPORT INFORMATION
  Report Type: 
  Country: None (occurrence: None)
  Receive Date: 20090421
  Receipt Date: 20071128
  Transmission Date: 20091009
  Serious: No
  Sender: FDA-Public Use
  Company Number: US-SOLVAY-00207035214

PATIENT
  Age: 66 Year
  Sex: Female
  Weight: 54.5 kg

DRUGS (2)
  1. ANDROGEL [Suspect]
     Indication: ACCIDENTAL EXPOSURE
     Dosage: DAILY DOSE:  UNKNOWN
     Route: 062
     Dates: start: 20071101
  2. PROPRANOLOL [Concomitant]
     Indication: HYPERTENSION
     Dosage: DAILY DOSE:  UNKNOWN
     Route: 048

REACTIONS (3)
  - ACNE [None]
  - HAIR TEXTURE ABNORMAL [None]
  - HIRSUTISM [None]
